FAERS Safety Report 7101810-2 (Version None)
Quarter: 2010Q4

REPORT INFORMATION
  Report Type: 
  Country: None (occurrence: None)
  Receive Date: 20101115
  Receipt Date: 20101101
  Transmission Date: 20110411
  Serious: Yes (Other)
  Sender: FDA-Public Use
  Company Number: PHHY2010AU59764

PATIENT
  Age: 12 Year
  Sex: Male

DRUGS (1)
  1. RITALIN LA [Suspect]
     Indication: ATTENTION DEFICIT/HYPERACTIVITY DISORDER
     Dosage: HALF OF A 20 MG CAPSULE
     Dates: start: 20100907, end: 20100907

REACTIONS (8)
  - CONVULSION [None]
  - GRAND MAL CONVULSION [None]
  - IRRITABILITY [None]
  - LETHARGY [None]
  - LOSS OF CONSCIOUSNESS [None]
  - MUSCLE RIGIDITY [None]
  - SPEECH DISORDER [None]
  - WRONG TECHNIQUE IN DRUG USAGE PROCESS [None]
